FAERS Safety Report 15853226 (Version 1)
Quarter: 2019Q1

REPORT INFORMATION
  Report Type: Spontaneous
  Country: US (occurrence: US)
  Receive Date: 20190119
  Receipt Date: 20190119
  Transmission Date: 20190417
  Serious: No
  Sender: FDA-Public Use
  Company Number: None

PATIENT
  Age: 69 Year
  Sex: Male
  Weight: 81 kg

DRUGS (11)
  1. L-LYSIN [Concomitant]
  2. GLUCOSAMINE [Concomitant]
     Active Substance: GLUCOSAMINE
  3. CAYENNE [Concomitant]
  4. MELATONIN [Concomitant]
     Active Substance: MELATONIN
  5. CHONDROITIN SULFATE [Concomitant]
     Active Substance: CHONDROITIN SULFATE (BOVINE)
  6. G.E. ALFUZOSIN HCL ER [Concomitant]
  7. VITAMIN D3 [Concomitant]
     Active Substance: CHOLECALCIFEROL
  8. OMEPRAZOLE DR [Concomitant]
     Active Substance: OMEPRAZOLE
  9. BIOTIN [Concomitant]
     Active Substance: BIOTIN
  10. LATANOPROST OP 0.005% SOL. SANDOZ [Suspect]
     Active Substance: LATANOPROST
     Indication: GLAUCOMA
     Dosage: ?          QUANTITY:1 DROP(S);?
     Route: 047
     Dates: start: 20181004, end: 20181016
  11. ZINC. [Concomitant]
     Active Substance: ZINC

REACTIONS (5)
  - Neuropathy peripheral [None]
  - Pain of skin [None]
  - Pruritus [None]
  - Heart rate irregular [None]
  - Chest pain [None]

NARRATIVE: CASE EVENT DATE: 20181016
